FAERS Safety Report 12262460 (Version 2)
Quarter: 2017Q2

REPORT INFORMATION
  Report Type: Report from Study
  Country: JP (occurrence: JP)
  Receive Date: 20160413
  Receipt Date: 20170428
  Transmission Date: 20170830
  Serious: Yes (Other)
  Sender: FDA-Public Use
  Company Number: JP-BEH-2016061258

PATIENT
  Age: 35 Year
  Sex: Female
  Weight: 45.9 kg

DRUGS (32)
  1. HIZENTRA [Suspect]
     Active Substance: HUMAN IMMUNOGLOBULIN G
     Indication: IMMUNODEFICIENCY COMMON VARIABLE
     Dosage: 30 ML, TOT
     Route: 065
     Dates: start: 20140716, end: 20140716
  2. HIZENTRA [Suspect]
     Active Substance: HUMAN IMMUNOGLOBULIN G
     Dosage: 30 ML, TOT
     Route: 065
     Dates: start: 20140924, end: 20140924
  3. HIZENTRA [Suspect]
     Active Substance: HUMAN IMMUNOGLOBULIN G
     Dosage: 30 ML, TOT
     Route: 065
     Dates: start: 20141105, end: 20141105
  4. HIZENTRA [Suspect]
     Active Substance: HUMAN IMMUNOGLOBULIN G
     Dosage: 30 ML, TOT
     Route: 065
     Dates: start: 20141210, end: 20141210
  5. HIZENTRA [Suspect]
     Active Substance: HUMAN IMMUNOGLOBULIN G
     Dosage: 30 ML, TOT
     Route: 065
     Dates: start: 20141224, end: 20141224
  6. CLARITH [Concomitant]
     Active Substance: CLARITHROMYCIN
     Dosage: UNK
     Route: 048
  7. MUCODYNE [Concomitant]
     Active Substance: CARBOCYSTEINE
     Dosage: UNK
     Route: 048
  8. HIZENTRA [Suspect]
     Active Substance: HUMAN IMMUNOGLOBULIN G
     Dosage: 30 ML, TOT
     Route: 065
     Dates: start: 20140813, end: 20140813
  9. HIZENTRA [Suspect]
     Active Substance: HUMAN IMMUNOGLOBULIN G
     Dosage: 30 ML, TOT
     Route: 065
     Dates: start: 20140827, end: 20140827
  10. HIZENTRA [Suspect]
     Active Substance: HUMAN IMMUNOGLOBULIN G
     Dosage: 30 ML, TOT
     Route: 065
     Dates: start: 20141001, end: 20141001
  11. BAKTAR [Concomitant]
     Active Substance: SULFAMETHOXAZOLE\TRIMETHOPRIM
     Dosage: UNK
     Route: 048
  12. HIZENTRA [Suspect]
     Active Substance: HUMAN IMMUNOGLOBULIN G
     Dosage: 30 ML, TOT
     Route: 065
     Dates: start: 20140903, end: 20140903
  13. HIZENTRA [Suspect]
     Active Substance: HUMAN IMMUNOGLOBULIN G
     Dosage: 30 ML, TOT
     Route: 065
     Dates: start: 20141022, end: 20141022
  14. HIZENTRA [Suspect]
     Active Substance: HUMAN IMMUNOGLOBULIN G
     Dosage: 30 ML, TOT
     Route: 065
     Dates: start: 20141112, end: 20141112
  15. HIZENTRA [Suspect]
     Active Substance: HUMAN IMMUNOGLOBULIN G
     Dosage: 30 ML, TOT
     Route: 065
     Dates: start: 20140730, end: 20140730
  16. HIZENTRA [Suspect]
     Active Substance: HUMAN IMMUNOGLOBULIN G
     Dosage: 30 ML, TOT
     Route: 065
     Dates: start: 20140820, end: 20140820
  17. HIZENTRA [Suspect]
     Active Substance: HUMAN IMMUNOGLOBULIN G
     Dosage: 30 ML, TOT
     Route: 065
     Dates: start: 20141126, end: 20141126
  18. HIZENTRA [Suspect]
     Active Substance: HUMAN IMMUNOGLOBULIN G
     Dosage: 30 ML, TOT
     Route: 065
     Dates: start: 20141203, end: 20141203
  19. HIZENTRA [Suspect]
     Active Substance: HUMAN IMMUNOGLOBULIN G
     Dosage: 30 ML, TOT
     Route: 065
     Dates: start: 20140723, end: 20140723
  20. HIZENTRA [Suspect]
     Active Substance: HUMAN IMMUNOGLOBULIN G
     Dosage: 30 ML, TOT
     Route: 065
     Dates: start: 20140806, end: 20140806
  21. HIZENTRA [Suspect]
     Active Substance: HUMAN IMMUNOGLOBULIN G
     Dosage: 30 ML, TOT
     Route: 065
     Dates: start: 20141029, end: 20141029
  22. HIZENTRA [Suspect]
     Active Substance: HUMAN IMMUNOGLOBULIN G
     Dosage: 30 ML, TOT
     Route: 065
     Dates: start: 20141119, end: 20141119
  23. HIZENTRA [Suspect]
     Active Substance: HUMAN IMMUNOGLOBULIN G
     Dosage: 30 ML, TOT
     Route: 065
     Dates: start: 20141015, end: 20141015
  24. HIZENTRA [Suspect]
     Active Substance: HUMAN IMMUNOGLOBULIN G
     Dosage: 30 ML, TOT
     Route: 065
     Dates: start: 20150107, end: 20150107
  25. TRANEXAMIC ACID. [Concomitant]
     Active Substance: TRANEXAMIC ACID
     Route: 048
     Dates: start: 20141008, end: 20141015
  26. HIZENTRA [Suspect]
     Active Substance: HUMAN IMMUNOGLOBULIN G
     Dosage: 30 ML, TOT
     Route: 065
     Dates: start: 20140910, end: 20140910
  27. HIZENTRA [Suspect]
     Active Substance: HUMAN IMMUNOGLOBULIN G
     Dosage: 30 ML, TOT
     Route: 065
     Dates: start: 20140917, end: 20140917
  28. HIZENTRA [Suspect]
     Active Substance: HUMAN IMMUNOGLOBULIN G
     Dosage: 30 ML, TOT
     Route: 065
     Dates: start: 20141008, end: 20141008
  29. HIZENTRA [Suspect]
     Active Substance: HUMAN IMMUNOGLOBULIN G
     Dosage: 30 ML, TOT
     Route: 065
     Dates: start: 20141217, end: 20141217
  30. HIZENTRA [Suspect]
     Active Substance: HUMAN IMMUNOGLOBULIN G
     Dosage: 30 ML, TOT
     Route: 065
     Dates: start: 20141231, end: 20141231
  31. CLARITIN [Concomitant]
     Active Substance: LORATADINE
     Dosage: UNK
     Route: 048
  32. CRAVIT [Concomitant]
     Active Substance: LEVOFLOXACIN
     Route: 048
     Dates: start: 20141008, end: 20141015

REACTIONS (2)
  - Sinusitis [Recovered/Resolved]
  - Oral herpes [Recovered/Resolved]

NARRATIVE: CASE EVENT DATE: 20141006
